FAERS Safety Report 4691395-2 (Version None)
Quarter: 2005Q2

REPORT INFORMATION
  Report Type: 
  Country: None (occurrence: None)
  Receive Date: 20050615
  Receipt Date: 20050602
  Transmission Date: 20051028
  Serious: Yes (Other)
  Sender: FDA-Public Use
  Company Number: 2005083886

PATIENT
  Age: 62 Year
  Sex: Female
  Weight: 108.8633 kg

DRUGS (9)
  1. LIPITOR [Suspect]
     Indication: BLOOD CHOLESTEROL INCREASED
     Dosage: ORAL
     Route: 048
     Dates: start: 20000101
  2. CELEBREX [Suspect]
     Indication: ARTHRITIS
     Dosage: 400 MG (200 MG, 2 IN 1 D), ORAL
     Route: 048
     Dates: start: 20020101
  3. PAXIL (PAROXETNE HYDROCHLORIDE) [Concomitant]
  4. CALCIUM (CALCIUM) [Concomitant]
  5. MULTIVITAMIN [Concomitant]
  6. VALSARTAN [Concomitant]
  7. VITAMIN E [Concomitant]
  8. STARLIX [Concomitant]
  9. ASA 9ACETYLSALICYLIC ACID) [Concomitant]

REACTIONS (9)
  - ACTIVITIES OF DAILY LIVING IMPAIRED [None]
  - ALANINE AMINOTRANSFERASE INCREASED [None]
  - ASPARTATE AMINOTRANSFERASE INCREASED [None]
  - CELLULITIS [None]
  - FIBROMYALGIA [None]
  - LENTIGO [None]
  - MYALGIA [None]
  - OSTEOARTHRITIS [None]
  - OVARIAN CYST [None]
